FAERS Safety Report 10039494 (Version 1)
Quarter: 2014Q1

REPORT INFORMATION
  Report Type: Report from Study
  Country: CN (occurrence: CN)
  Receive Date: 20140326
  Receipt Date: 20140326
  Transmission Date: 20141002
  Serious: Yes (Hospitalization)
  Sender: FDA-Public Use
  Company Number: CN-ROCHE-1368830

PATIENT
  Age: 44 Year
  Sex: Male

DRUGS (2)
  1. PEGASYS [Suspect]
     Indication: HEPATITIS C
     Route: 058
     Dates: start: 2013
  2. PEGASYS [Suspect]
     Route: 058
     Dates: start: 201401

REACTIONS (2)
  - Meningioma benign [Recovered/Resolved]
  - Infection [Recovering/Resolving]
